FAERS Safety Report 5390176-4 (Version None)
Quarter: 2007Q3

REPORT INFORMATION
  Report Type: 
  Country: None (occurrence: None)
  Receive Date: 20070718
  Receipt Date: 20070717
  Transmission Date: 20080115
  Serious: Yes (Hospitalization, Other)
  Sender: FDA-Public Use
  Company Number: HQ6518526MAY2000

PATIENT
  Sex: Male
  Weight: 74.91 kg

DRUGS (2)
  1. ADVIL COLD AND SINUS [Suspect]
     Indication: NASOPHARYNGITIS
     Dosage: TAKING PRODUCT ON AND OFF FOR 3 MONTHS APPROX.  6 CAPS/DAY
     Route: 048
     Dates: start: 19991120, end: 20000121
  2. ADVIL COLD AND SINUS [Suspect]
     Indication: PULMONARY CONGESTION
     Route: 048

REACTIONS (3)
  - ATRIAL FIBRILLATION [None]
  - HYPERHIDROSIS [None]
  - TACHYCARDIA [None]
